FAERS Safety Report 8092015-X (Version None)
Quarter: 2011Q4

REPORT INFORMATION
  Report Type: 
  Country: None (occurrence: None)
  Receive Date: 20111221
  Receipt Date: 20110519
  Transmission Date: 20120403
  Serious: Yes (Other)
  Sender: FDA-Public Use
  Company Number: PHHY2011US43994

PATIENT
  Age: 77 Year
  Sex: Male
  Weight: 87.5 kg

DRUGS (1)
  1. EXJADE [Suspect]
     Indication: ANAEMIA
     Dosage: 1500 MG, DAILY, ORAL
     Route: 048
     Dates: end: 20110519

REACTIONS (1)
  - RENAL FUNCTION TEST ABNORMAL [None]
